FAERS Safety Report 7097585-6 (Version None)
Quarter: 2010Q4

REPORT INFORMATION
  Report Type: 
  Country: None (occurrence: None)
  Receive Date: 20101111
  Receipt Date: 20101029
  Transmission Date: 20110411
  Serious: Yes (Other)
  Sender: FDA-Public Use
  Company Number: US-MYLANLABS-2010S1020335

PATIENT
  Age: 53 Year
  Sex: Female

DRUGS (2)
  1. MERCAPTOPURINE [Suspect]
     Indication: CROHN'S DISEASE
     Route: 065
  2. AZATHIOPRINE [Suspect]
     Indication: CROHN'S DISEASE
     Route: 065

REACTIONS (1)
  - FOLLICLE CENTRE LYMPHOMA, FOLLICULAR GRADE I, II, III [None]
